FAERS Safety Report 6385837-4 (Version None)
Quarter: 2009Q4

REPORT INFORMATION
  Report Type: 
  Country: None (occurrence: None)
  Receive Date: 20091002
  Receipt Date: 20090925
  Transmission Date: 20100525
  Serious: Yes (Other)
  Sender: FDA-Public Use
  Company Number: US-WYE-H07826309

PATIENT
  Sex: Female

DRUGS (4)
  1. PREMPRO [Suspect]
     Indication: HORMONE REPLACEMENT THERAPY
  2. ESTRADIOL AND NORGESTIMATE [Suspect]
  3. ESTRADIOL [Suspect]
  4. PREMARIN [Suspect]

REACTIONS (1)
  - BREAST CANCER METASTATIC [None]
